FAERS Safety Report 8211592-9 (Version None)
Quarter: 2012Q1

REPORT INFORMATION
  Report Type: 
  Country: None (occurrence: None)
  Receive Date: 20120315
  Receipt Date: 20120308
  Transmission Date: 20120608
  Serious: Yes (Hospitalization)
  Sender: FDA-Public Use
  Company Number: 2012SP000811

PATIENT
  Age: 70 Year
  Sex: Female

DRUGS (3)
  1. LUNESTA [Suspect]
     Indication: INSOMNIA
     Route: 048
     Dates: start: 20111101, end: 20120301
  2. ACETAMINOPHEN [Concomitant]
     Indication: PRODUCT USED FOR UNKNOWN INDICATION
  3. ALL OTHER THERAPEUTIC PRODUCTS [Concomitant]
     Indication: PRODUCT USED FOR UNKNOWN INDICATION

REACTIONS (7)
  - SCREAMING [None]
  - MOOD SWINGS [None]
  - INSOMNIA [None]
  - DRUG INEFFECTIVE [None]
  - PSYCHOTIC DISORDER [None]
  - HALLUCINATION, VISUAL [None]
  - DEMENTIA [None]
